FAERS Safety Report 18931955 (Version 1)
Quarter: 2021Q1

REPORT INFORMATION
  Report Type: Spontaneous
  Country: FR (occurrence: FR)
  Receive Date: 20210224
  Receipt Date: 20210224
  Transmission Date: 20210420
  Serious: Yes (Other)
  Sender: FDA-Public Use
  Company Number: FR-SUN PHARMACEUTICAL INDUSTRIES LTD-2021RR-282590

PATIENT
  Age: 73 Year
  Sex: Female

DRUGS (7)
  1. FOLINIC ACID [Concomitant]
     Active Substance: LEUCOVORIN
     Indication: CHEMOTHERAPY
     Dosage: FOLFOX
     Route: 065
  2. FLUOROURACIL. [Concomitant]
     Active Substance: FLUOROURACIL
     Indication: MALIGNANT NEOPLASM PROGRESSION
  3. METHYLPREDNISOLONE. [Suspect]
     Active Substance: METHYLPREDNISOLONE
     Indication: PREMEDICATION
     Route: 065
  4. OXALIPLATIN. [Suspect]
     Active Substance: OXALIPLATIN
     Indication: MALIGNANT NEOPLASM PROGRESSION
  5. FOLINIC ACID [Concomitant]
     Active Substance: LEUCOVORIN
     Indication: MALIGNANT NEOPLASM PROGRESSION
  6. OXALIPLATIN. [Suspect]
     Active Substance: OXALIPLATIN
     Indication: CHEMOTHERAPY
     Dosage: UNK
     Route: 065
  7. FLUOROURACIL. [Concomitant]
     Active Substance: FLUOROURACIL
     Indication: CHEMOTHERAPY
     Dosage: UNK
     Route: 065

REACTIONS (1)
  - Haemolytic anaemia [Unknown]
